FAERS Safety Report 19304052 (Version 1)
Quarter: 2021Q2

REPORT INFORMATION
  Report Type: Spontaneous
  Country: US (occurrence: US)
  Receive Date: 20210525
  Receipt Date: 20210525
  Transmission Date: 20210717
  Serious: Yes (Other)
  Sender: FDA-Public Use
  Company Number: US-AMGEN-USASP2021078204

PATIENT

DRUGS (1)
  1. NEUPOGEN [Suspect]
     Active Substance: FILGRASTIM
     Indication: HAEMATOPOIETIC STEM CELL MOBILISATION
     Dosage: 5?10 UG/KG/D FOR 3 CONSECUTIVE DAYS
     Route: 058

REACTIONS (3)
  - Post procedural pneumonia [Unknown]
  - Cholangitis [Unknown]
  - Splenomegaly [Unknown]
